FAERS Safety Report 14994642 (Version 1)
Quarter: 2018Q2

REPORT INFORMATION
  Report Type: Report from Study
  Country: None (occurrence: CL)
  Receive Date: 20180611
  Receipt Date: 20180611
  Transmission Date: 20180711
  Serious: Yes (Hospitalization, Other)
  Sender: FDA-Public Use
  Company Number: CL-ABBVIE-18K-034-2378992-00

PATIENT
  Age: 69 Year
  Sex: Female

DRUGS (1)
  1. HUMIRA [Suspect]
     Active Substance: ADALIMUMAB
     Indication: RHEUMATOID ARTHRITIS
     Route: 058
     Dates: start: 20170512, end: 20180302

REACTIONS (3)
  - Herpes virus infection [Recovered/Resolved]
  - Malaise [Recovered/Resolved]
  - Calcinosis [Recovered/Resolved]

NARRATIVE: CASE EVENT DATE: 201803
